FAERS Safety Report 8860990 (Version 1)
Quarter: 2012Q4

REPORT INFORMATION
  Report Type: Report from Study
  Country: SE (occurrence: SE)
  Receive Date: 20121025
  Receipt Date: 20121025
  Transmission Date: 20130627
  Serious: Yes (Death, Hospitalization)
  Sender: FDA-Public Use
  Company Number: SE-009507513-0612USA01628

PATIENT
  Age: 69 Year
  Sex: Female
  Weight: 73 kg

DRUGS (14)
  1. EZETIMIBE AND SIMVASTATIN [Suspect]
     Indication: ACUTE CORONARY SYNDROME
     Dosage: UNK mg, UNK
     Route: 048
     Dates: start: 20060728
  2. BLINDED PLACEBO [Suspect]
     Indication: ACUTE CORONARY SYNDROME
     Dosage: UNK mg, UNK
     Route: 048
     Dates: start: 20060728
  3. BLINDED POST TRIAL THERAPY [Suspect]
     Indication: ACUTE CORONARY SYNDROME
     Dosage: UNK mg, UNK
     Route: 048
     Dates: start: 20060728
  4. BLINDED PRE TRIAL THERAPY [Suspect]
     Indication: ACUTE CORONARY SYNDROME
     Dosage: UNK mg, UNK
     Route: 048
     Dates: start: 20060728
  5. BLINDED SIMVASTATIN [Suspect]
     Indication: ACUTE CORONARY SYNDROME
     Dosage: UNK mg, UNK
     Route: 048
     Dates: start: 20060728
  6. BLINDED THERAPY [Suspect]
     Indication: ACUTE CORONARY SYNDROME
     Dosage: UNK
     Route: 048
     Dates: start: 20060728
  7. HYDROCHLOROTHIAZIDE [Suspect]
     Dosage: 25 mg, qd
     Route: 048
     Dates: start: 20050428
  8. LOSARTAN POTASSIUM [Suspect]
     Dosage: 100 mg, qd
     Route: 048
     Dates: start: 20050428
  9. METFORMIN [Suspect]
     Dosage: 1500 mg, qd
     Route: 048
     Dates: start: 20000203
  10. ASPIRIN [Concomitant]
     Dosage: 75 mg, qd
     Route: 048
     Dates: start: 19940630
  11. INSULIN [Concomitant]
     Dates: start: 20040415
  12. CYANOCOBALAMIN [Concomitant]
     Dosage: 1 mg, qd
     Route: 048
     Dates: start: 20050131
  13. BISOPROLOL [Concomitant]
     Dosage: 5 mg, qd
     Route: 048
     Dates: start: 20060509
  14. SIMVASTATIN [Concomitant]
     Dosage: 40 mg, qd
     Route: 048
     Dates: start: 20061004

REACTIONS (5)
  - Renal tubular necrosis [Fatal]
  - Loss of consciousness [None]
  - Dehydration [None]
  - Lactic acidosis [None]
  - Cardiac arrest [None]
